FAERS Safety Report 7355459-7 (Version None)
Quarter: 2011Q1

REPORT INFORMATION
  Report Type: 
  Country: None (occurrence: None)
  Receive Date: 20110316
  Receipt Date: 20110310
  Transmission Date: 20110831
  Serious: Yes (Death, Hospitalization)
  Sender: FDA-Public Use
  Company Number: DE-ELI_LILLY_AND_COMPANY-DE201008007438

PATIENT
  Sex: Female

DRUGS (2)
  1. PEMETREXED [Suspect]
     Indication: NON-SMALL CELL LUNG CANCER
     Dosage: 500 MG/M2 (ACTUAL DOSE 955 MG), CYCLICALLY
     Route: 042
     Dates: start: 20100217
  2. PAZOPANIB HYDROCHLORIDE [Suspect]
     Indication: NON-SMALL CELL LUNG CANCER
     Dosage: 800 MG, DAILY (1/D)
     Route: 048
     Dates: start: 20100217

REACTIONS (2)
  - SYNCOPE [None]
  - PNEUMONIA [None]
